FAERS Safety Report 5166806-9 (Version None)
Quarter: 2006Q4

REPORT INFORMATION
  Report Type: 
  Country: None (occurrence: None)
  Receive Date: 20061129
  Receipt Date: 20061117
  Transmission Date: 20070319
  Serious: Yes (Death, Life-Threatening)
  Sender: FDA-Public Use
  Company Number: MC200600807

PATIENT
  Age: 53 Year
  Sex: Male
  Weight: 80 kg

DRUGS (2)
  1. ANGIOMAX [Suspect]
     Indication: DRUG USE FOR UNKNOWN INDICATION
     Dosage: 60 MG, BOLUS, IV BOLUS; SEE IMAGE
     Route: 040
     Dates: start: 20061110, end: 20061110
  2. ANGIOMAX [Suspect]
     Indication: DRUG USE FOR UNKNOWN INDICATION
     Dosage: 60 MG, BOLUS, IV BOLUS; SEE IMAGE
     Route: 040
     Dates: start: 20061110, end: 20061110

REACTIONS (7)
  - BUNDLE BRANCH BLOCK RIGHT [None]
  - CORONARY ARTERY OCCLUSION [None]
  - HYPOTENSION [None]
  - PAIN [None]
  - PULMONARY OEDEMA [None]
  - STENT OCCLUSION [None]
  - TACHYCARDIA [None]
